FAERS Safety Report 8965744 (Version 1)
Quarter: 2012Q4

REPORT INFORMATION
  Report Type: Spontaneous
  Country: DE (occurrence: None)
  Receive Date: 20121204
  Receipt Date: 20121204
  Transmission Date: 20130627
  Serious: Yes (Congenital Anomaly)
  Sender: FDA-Public Use
  Company Number: 2012-20792

PATIENT
  Sex: Female

DRUGS (2)
  1. CITALOPRAM HYDROBROMIDE [Suspect]
     Indication: DEPRESSION
     Dosage: 20 [mg/d]/ dosage reduction to 10mg/d in the second
     Route: 064
     Dates: start: 20070714, end: 20080421
  2. IBUPROFEN [Concomitant]

REACTIONS (2)
  - Double outlet right ventricle [None]
  - Maternal drugs affecting foetus [None]
